FAERS Safety Report 6091864-7 (Version None)
Quarter: 2009Q1

REPORT INFORMATION
  Report Type: 
  Country: None (occurrence: None)
  Receive Date: 20090225
  Receipt Date: 20080915
  Transmission Date: 20090719
  Serious: No
  Sender: FDA-Public Use
  Company Number: A0743969A

PATIENT
  Age: 33 Year
  Sex: Female

DRUGS (1)
  1. VALTREX [Suspect]
     Indication: HERPES OPHTHALMIC
     Route: 048
     Dates: start: 20080711, end: 20080723

REACTIONS (3)
  - EYE PRURITUS [None]
  - PRURITUS [None]
  - RASH [None]
